FAERS Safety Report 5827851-0 (Version None)
Quarter: 2008Q3

REPORT INFORMATION
  Report Type: 
  Country: None (occurrence: None)
  Receive Date: 20080728
  Receipt Date: 20080711
  Transmission Date: 20090109
  Serious: Yes (Life-Threatening, Hospitalization)
  Sender: FDA-Public Use
  Company Number: DSA_32152_2008

PATIENT
  Sex: Female

DRUGS (14)
  1. TEMESTA /00273201/ (TEMESTA - LORAZEPAM) (NOT SPECIFIED) [Suspect]
     Dosage: (30 MG 1X REPORTED MAXIMAL DOSE USED TO ATTEMPT SUICIDE)
     Dates: start: 20080629, end: 20080629
  2. TEMESTA /00273201/ (TEMESTA - LORAZEPAM) (NOT SPECIFIED) [Suspect]
     Indication: DEPRESSION
     Dosage: (1 MG ORAL)
     Route: 048
     Dates: end: 20080629
  3. CEFACET /00145502/ (CEFACET - CEFALEXIN MONOHYDRATE) 20 MG (NOT SPECIF [Suspect]
     Dosage: (240 MG 1X SUSPECTED MAXIMAL DOSE USED TO ATTEMPT SUICIDE)
     Dates: start: 20080629, end: 20080629
  4. CITALOPRAM HYDROBROMIDE [Suspect]
     Dosage: (800 MG 1X SUSPECTED DOSE USED TO ATTEMPT SUICIDE)
     Dates: start: 20080629, end: 20080629
  5. CITALOPRAM HYDROBROMIDE [Suspect]
     Indication: DEPRESSION
     Dosage: (40 MG BID ORAL)
     Route: 048
     Dates: end: 20080629
  6. DEPAKINE CHRONO /01294701/ (DEPAKINE CHRONO - VALPROATE SODIUM/VALPROI [Suspect]
     Indication: DEPRESSION
     Dosage: (500 MG TID ORAL)
     Route: 048
  7. SEROQUEL [Suspect]
     Dosage: (250 MG 1X REPORTED MAXIMAL DOSE USED TO ATTEMPT SUICIDE)
     Dates: start: 20080629, end: 20080629
  8. SEROQUEL [Suspect]
     Indication: DEPRESSION
     Dosage: (DF ORAL)
     Route: 048
  9. ZYPREXA [Suspect]
     Dosage: (35 MG 1X REPORTED MAXIMAL DOSE USED TO ATTEMPT SUICIDE)
     Dates: start: 20080629, end: 20080629
  10. ZYPREXA [Suspect]
     Indication: DEPRESSION
     Dosage: (5 MG QD ORAL)
     Route: 048
     Dates: end: 20080629
  11. ETHANOL (ALCOHOL - ETHANOL) [Suspect]
     Dosage: (ORAL)
     Route: 048
     Dates: end: 20080629
  12. ZURCAL /01263201/ [Concomitant]
  13. TRAMADOL HCL [Concomitant]
  14. IRFEN [Concomitant]

REACTIONS (12)
  - ALCOHOL POISONING [None]
  - CARBON DIOXIDE INCREASED [None]
  - CENTRAL-ALVEOLAR HYPOVENTILATION [None]
  - DELIRIUM [None]
  - DEPRESSED LEVEL OF CONSCIOUSNESS [None]
  - DRUG INEFFECTIVE [None]
  - DRUG INTERACTION [None]
  - ENURESIS [None]
  - MIOSIS [None]
  - MULTIPLE DRUG OVERDOSE INTENTIONAL [None]
  - SUICIDE ATTEMPT [None]
  - UNRESPONSIVE TO STIMULI [None]
